FAERS Safety Report 8207970-4 (Version None)
Quarter: 2012Q1

REPORT INFORMATION
  Report Type: 
  Country: None (occurrence: None)
  Receive Date: 20120314
  Receipt Date: 20120308
  Transmission Date: 20120608
  Serious: Yes (Other)
  Sender: FDA-Public Use
  Company Number: US-BAYER-2012-024218

PATIENT
  Age: 35 Year
  Sex: Male

DRUGS (1)
  1. AVELOX [Suspect]
     Indication: SINUSITIS
     Dosage: 400 MG, BID
     Route: 048
     Dates: start: 20080901

REACTIONS (6)
  - PALPITATIONS [None]
  - MYALGIA [None]
  - ARTHRALGIA [None]
  - FATIGUE [None]
  - PERICARDITIS [None]
  - HEADACHE [None]
